FAERS Safety Report 10275319 (Version 1)
Quarter: 2014Q2

REPORT INFORMATION
  Report Type: Spontaneous
  Country: US (occurrence: None)
  Receive Date: 20140630
  Receipt Date: 20140630
  Transmission Date: 20141212
  Serious: Yes (Life-Threatening)
  Sender: FDA-Public Use
  Company Number: None

PATIENT
  Age: 70 Year
  Sex: Male
  Weight: 87 kg

DRUGS (4)
  1. RITUXIMAB [Suspect]
     Indication: LYMPHOMA
     Dates: start: 20140602, end: 20140602
  2. VINCRISTINE [Concomitant]
  3. ADRIAMVCIN [Concomitant]
  4. PREDNISONE [Concomitant]

REACTIONS (12)
  - Dyspnoea [None]
  - Asthenia [None]
  - Failure to thrive [None]
  - Aphagia [None]
  - Dysphagia [None]
  - Hypoxia [None]
  - Renal failure acute [None]
  - Pneumonia [None]
  - Sepsis [None]
  - Hypotension [None]
  - Paralysis [None]
  - Interstitial lung disease [None]
